FAERS Safety Report 8978704 (Version 1)
Quarter: 2012Q4

REPORT INFORMATION
  Report Type: Spontaneous
  Country: MX (occurrence: None)
  Receive Date: 20121105
  Receipt Date: 20121105
  Transmission Date: 20130627
  Serious: Yes (Hospitalization, Other)
  Sender: FDA-Public Use
  Company Number: ENTC2012-0503

PATIENT
  Sex: Male

DRUGS (8)
  1. STALEVO (LEVODOPA, CARBIDOPA, ENTACAPONE) [Suspect]
     Indication: PARKINSON^S DISEASE
     Dosage: 1 tablet
  2. STALEVO (LEVODOPA, CARBIDOPA, ENTACAPONE) [Suspect]
     Indication: PARKINSON^S DISEASE
     Dosage: 2 tablets
  3. STALEVO (LEVODOPA, CARBIDOPA, ENTACAPONE) [Suspect]
     Indication: PARKINSON^S DISEASE
     Dosage: 5 tablets
  4. STALEVO (LEVODOPA, CARBIDOPA, ENTACAPONE) [Suspect]
     Indication: PARKINSON^S DISEASE
     Dosage: 1 tablet each 12 hours
     Dates: end: 201204
  5. CARBAMAZEPINE [Concomitant]
  6. TAFIL [Concomitant]
  7. LYRICA [Concomitant]
  8. SOMAZINA [Concomitant]

REACTIONS (2)
  - Hip fracture [None]
  - Fall [None]
